FAERS Safety Report 24531228 (Version 2)
Quarter: 2024Q4

REPORT INFORMATION
  Report Type: Spontaneous
  Country: JP (occurrence: JP)
  Receive Date: 20241022
  Receipt Date: 20241028
  Transmission Date: 20250115
  Serious: Yes (Death, Disabling)
  Sender: MALLINCKRODT
  Company Number: JP-MALLINCKRODT-MNK202406438

PATIENT
  Age: 5 Decade
  Sex: Male
  Weight: 72 kg

DRUGS (14)
  1. NITRIC OXIDE [Suspect]
     Active Substance: NITRIC OXIDE
     Indication: Pulmonary hypertension
     Dosage: 10 PPM
     Route: 055
     Dates: start: 20230819, end: 20230822
  2. MIDAZOLAM [Concomitant]
     Active Substance: MIDAZOLAM
     Dosage: UNKNOWN
  3. FENTANYL [Concomitant]
     Active Substance: FENTANYL
     Dosage: UNKNOWN
  4. ROCURONIUM [Concomitant]
     Active Substance: ROCURONIUM BROMIDE
     Dosage: UNKNOWN
  5. SEVOFLURANE [Concomitant]
     Active Substance: SEVOFLURANE
     Dosage: UNKNOWN
  6. REMIFENTANIL [Concomitant]
     Active Substance: REMIFENTANIL
     Dosage: UNKNOWN
  7. DOBUTAMINE [Concomitant]
     Active Substance: DOBUTAMINE HYDROCHLORIDE
     Dosage: PER MINUTE
  8. PROPOFOL [Concomitant]
     Active Substance: PROPOFOL
     Dosage: UNKNOWN
  9. DEXMEDETOMIDINE [Concomitant]
     Active Substance: DEXMEDETOMIDINE
     Dosage: UNKNOWN
  10. CEFMETAZOLE [Concomitant]
     Active Substance: CEFMETAZOLE
     Dosage: UNKNOWN
  11. HEPARIN [Concomitant]
     Active Substance: HEPARIN SODIUM
     Dosage: UNKNOWN
  12. OMEPRAZOLE [Concomitant]
     Active Substance: OMEPRAZOLE
     Dosage: UNKNOWN
  13. EPINEPHRINE [Concomitant]
     Active Substance: EPINEPHRINE
     Dosage: PER MINUTE
  14. NOREPINEPHRINE [Concomitant]
     Active Substance: NOREPINEPHRINE\NOREPINEPHRINE BITARTRATE
     Dosage: PER MINUTE

REACTIONS (2)
  - Gastrointestinal haemorrhage [Fatal]
  - Acute kidney injury [Recovered/Resolved]

NARRATIVE: CASE EVENT DATE: 20230819
